FAERS Safety Report 7749191-5 (Version None)
Quarter: 2011Q3

REPORT INFORMATION
  Report Type: 
  Country: None (occurrence: None)
  Receive Date: 20110914
  Receipt Date: 20110902
  Transmission Date: 20111222
  Serious: Yes (Hospitalization)
  Sender: FDA-Public Use
  Company Number: US-BAYER-2011-011497

PATIENT
  Age: 40 Year
  Sex: Female
  Weight: 54.422 kg

DRUGS (1)
  1. YAZ [Suspect]
     Indication: MENSTRUATION IRREGULAR
     Dosage: UNK
     Dates: start: 20050501, end: 20071001

REACTIONS (3)
  - THROMBOSIS [None]
  - DEEP VEIN THROMBOSIS [None]
  - PAIN [None]
